FAERS Safety Report 7104924-6 (Version None)
Quarter: 2010Q4

REPORT INFORMATION
  Report Type: 
  Country: None (occurrence: None)
  Receive Date: 20101116
  Receipt Date: 20101105
  Transmission Date: 20110411
  Serious: Yes (Death, Hospitalization)
  Sender: FDA-Public Use
  Company Number: US-CELGENEUS-163-20785-10110092

PATIENT
  Age: 80 Year
  Sex: Male
  Weight: 95.1 kg

DRUGS (21)
  1. THALOMID [Suspect]
     Indication: MULTIPLE MYELOMA
     Route: 048
     Dates: start: 20080719
  2. THALOMID [Suspect]
     Route: 048
     Dates: start: 20081101
  3. THALOMID [Suspect]
     Route: 048
     Dates: start: 20100814, end: 20100825
  4. MELPHALAN HYDROCHLORIDE [Suspect]
     Indication: MULTIPLE MYELOMA
     Route: 048
     Dates: start: 20080718, end: 20090720
  5. PREDNISONE [Suspect]
     Indication: MULTIPLE MYELOMA
     Route: 048
     Dates: start: 20080719, end: 20090623
  6. ASPIRIN [Concomitant]
     Route: 048
     Dates: start: 20080719
  7. ASPIRIN [Concomitant]
     Route: 065
     Dates: start: 20080912, end: 20101013
  8. COUMADIN [Concomitant]
     Route: 065
     Dates: start: 20071022, end: 20101013
  9. DSS [Concomitant]
     Indication: CONSTIPATION
     Route: 065
     Dates: start: 20071024, end: 20101013
  10. FENOFIBRATE [Concomitant]
     Route: 065
     Dates: start: 20100909, end: 20101013
  11. LIDODERM [Concomitant]
     Indication: PAIN
     Route: 062
     Dates: start: 20090609, end: 20100916
  12. METRONIDAZOLE [Concomitant]
     Route: 065
     Dates: start: 20101021, end: 20101030
  13. OMEGA-3 FATTY ACIDS [Concomitant]
     Dosage: 340MG-1,000MG
     Route: 065
     Dates: start: 20080423, end: 20101013
  14. OMEPRAZOLE [Concomitant]
     Route: 065
     Dates: start: 20080311, end: 20101013
  15. POTASSIUM CHLORIDE [Concomitant]
     Indication: SUPPLEMENTATION THERAPY
     Route: 065
     Dates: start: 20090402, end: 20101013
  16. PROCHLORPERAZINE [Concomitant]
     Indication: NAUSEA
     Route: 065
     Dates: start: 20080818, end: 20101008
  17. SIMVASTATIN [Concomitant]
     Route: 065
     Dates: start: 20100927, end: 20101013
  18. TRICOR [Concomitant]
     Route: 065
     Dates: start: 20080423, end: 20100909
  19. FUROSEMIDE [Concomitant]
     Route: 065
     Dates: start: 20090402
  20. ACETAMINOPHEN AND HYDROCODONE BITARTRATE [Concomitant]
     Indication: PAIN
     Dosage: 5MG-500MG
     Route: 065
     Dates: start: 20090609
  21. METOPROLOL [Concomitant]
     Route: 065
     Dates: start: 20100702

REACTIONS (1)
  - ACUTE MYELOID LEUKAEMIA [None]
